FAERS Safety Report 16160270 (Version 5)
Quarter: 2019Q2

REPORT INFORMATION
  Report Type: Spontaneous
  Country: US (occurrence: US)
  Receive Date: 20190404
  Receipt Date: 20190619
  Transmission Date: 20190711
  Serious: Yes (Other)
  Sender: FDA-Public Use
  Company Number: US-TAKEDA-2019TUS018290

PATIENT
  Age: 76 Year
  Sex: Male
  Weight: 65.76 kg

DRUGS (23)
  1. VELCADE [Suspect]
     Active Substance: BORTEZOMIB
     Indication: PRODUCT USED FOR UNKNOWN INDICATION
     Dosage: 3.5 MILLIGRAM
     Route: 065
     Dates: start: 20190110, end: 20190424
  2. JANUVIA [Concomitant]
     Active Substance: SITAGLIPTIN PHOSPHATE
     Dosage: 100 MILLIGRAM
     Dates: start: 20181026
  3. IRON [Concomitant]
     Active Substance: IRON
     Dosage: 325 MILLIGRAM
     Dates: start: 20180228
  4. MORPHINE SULFATE. [Concomitant]
     Active Substance: MORPHINE SULFATE
     Dosage: 15 MILLIGRAM
     Route: 065
     Dates: start: 20181026
  5. NINLARO [Suspect]
     Active Substance: IXAZOMIB CITRATE
     Indication: PLASMA CELL MYELOMA
     Dosage: 4 MILLIGRAM
     Route: 048
     Dates: start: 20190220
  6. CALCIUM CARBONATE W/VITAMIN D      /00944201/ [Concomitant]
     Dosage: UNK
     Dates: start: 20181026
  7. LOSARTAN. [Concomitant]
     Active Substance: LOSARTAN
     Dosage: 100 MILLIGRAM
     Dates: start: 20190110
  8. METFORMIN ER [Concomitant]
     Active Substance: METFORMIN HYDROCHLORIDE
     Dosage: 1000 MILLIGRAM
     Route: 065
     Dates: start: 20181026
  9. ASA [Concomitant]
     Active Substance: ASPIRIN
  10. GLIPIZIDE. [Concomitant]
     Active Substance: GLIPIZIDE
     Dosage: 10 MILLIGRAM
     Dates: start: 20181026
  11. NIFEDIPINE. [Concomitant]
     Active Substance: NIFEDIPINE
     Dosage: 60 MILLIGRAM
     Route: 065
     Dates: start: 20181026
  12. RED YEAST RICE WITH PLANT STEROLS [Concomitant]
     Active Substance: DIETARY SUPPLEMENT
     Dosage: 600 MILLIGRAM
     Route: 065
     Dates: start: 20181026
  13. SIMVASTATIN. [Concomitant]
     Active Substance: SIMVASTATIN
     Dosage: UNK
     Route: 065
     Dates: start: 20181026
  14. LYRICA [Concomitant]
     Active Substance: PREGABALIN
     Dosage: 50 MILLIGRAM
     Route: 065
     Dates: start: 20190208
  15. COLCHICINE. [Concomitant]
     Active Substance: COLCHICINE
     Dosage: 0.6 MILLIGRAM
     Route: 065
     Dates: start: 20180208
  16. REVLIMID [Concomitant]
     Active Substance: LENALIDOMIDE
     Dosage: 25 MILLIGRAM
     Route: 065
  17. PIOGLITAZONE. [Concomitant]
     Active Substance: PIOGLITAZONE
     Dosage: 45 MILLIGRAM
     Route: 065
  18. NINLARO [Suspect]
     Active Substance: IXAZOMIB CITRATE
     Dosage: 4 MILLIGRAM
     Route: 048
     Dates: start: 20190304
  19. CLINDAMYCIN. [Suspect]
     Active Substance: CLINDAMYCIN
     Indication: GINGIVITIS
     Dosage: 300 MILLIGRAM
     Route: 065
     Dates: start: 20190508
  20. ALLOPURINOL. [Concomitant]
     Active Substance: ALLOPURINOL
     Dosage: UNK
     Route: 065
     Dates: start: 20180208
  21. ENALAPRIL [Concomitant]
     Active Substance: ENALAPRIL
     Dosage: 5 MILLIGRAM
     Dates: start: 20181026
  22. GLUCOSAMINE + CHONDROITIN          /01430901/ [Concomitant]
     Active Substance: CHONDROITIN SULFATE (BOVINE)\GLUCOSAMINE SULFATE
     Dosage: 1500 MILLIGRAM
     Route: 065
     Dates: start: 20181026
  23. XGEVA [Concomitant]
     Active Substance: DENOSUMAB
     Dosage: 120 UNK
     Route: 065
     Dates: start: 20190110, end: 20190424

REACTIONS (11)
  - Off label use [Unknown]
  - Lethargy [Unknown]
  - Asthenia [Unknown]
  - Peripheral swelling [Unknown]
  - Fall [Unknown]
  - Blood glucose decreased [Unknown]
  - Gingivitis [Unknown]
  - Pain in extremity [Unknown]
  - Diarrhoea [Unknown]
  - Fatigue [Unknown]
  - Back pain [Unknown]

NARRATIVE: CASE EVENT DATE: 20190228
